FAERS Safety Report 5942092-4 (Version None)
Quarter: 2008Q4

REPORT INFORMATION
  Report Type: 
  Country: None (occurrence: None)
  Receive Date: 20081104
  Receipt Date: 20081104
  Transmission Date: 20090506
  Serious: No
  Sender: FDA-Public Use
  Company Number: None

PATIENT
  Age: 42 Year
  Sex: Female

DRUGS (1)
  1. VARENICLINE [Suspect]
     Dosage: 0.5 MG BID PO
     Route: 048
     Dates: start: 20071101, end: 20071108

REACTIONS (4)
  - AGITATION [None]
  - DEPRESSION [None]
  - HALLUCINATION [None]
  - HEADACHE [None]
